FAERS Safety Report 9238487 (Version 1)
Quarter: 2013Q2

REPORT INFORMATION
  Report Type: Spontaneous
  Country: US (occurrence: None)
  Receive Date: 20130417
  Receipt Date: 20130417
  Transmission Date: 20140414
  Serious: No
  Sender: FDA-Public Use
  Company Number: None

PATIENT
  Age: 53 Year
  Sex: Female
  Weight: 63.9 kg

DRUGS (2)
  1. METHYLENE BLUE [Suspect]
     Dosage: 1.5-2 MG/KG ONCE IV ?02/06/2013-02/06/2013 1 DOSE OVER 20-60 MINUTES
     Route: 042
     Dates: start: 20130206, end: 20130206
  2. SERTRALINE [Concomitant]

REACTIONS (9)
  - Lethargy [None]
  - Systemic inflammatory response syndrome [None]
  - Pulmonary oedema [None]
  - Vasoplegia syndrome [None]
  - Cardiogenic shock [None]
  - Unresponsive to stimuli [None]
  - Tongue disorder [None]
  - Muscle twitching [None]
  - Pupils unequal [None]
